FAERS Safety Report 22330834 (Version 1)
Quarter: 2023Q2

REPORT INFORMATION
  Report Type: Spontaneous
  Country: IT (occurrence: IT)
  Receive Date: 20230517
  Receipt Date: 20230517
  Transmission Date: 20230721
  Serious: Yes (Other)
  Sender: FDA-Public Use
  Company Number: IT-SUN PHARMACEUTICAL INDUSTRIES LTD-2023R1-381109

PATIENT
  Age: 53 Year
  Sex: Female

DRUGS (3)
  1. ACETAZOLAMIDE [Suspect]
     Active Substance: ACETAZOLAMIDE
     Indication: Product used for unknown indication
     Dosage: 62.5 MILLIGRAM, TID
     Route: 065
  2. MEXILETINE [Concomitant]
     Active Substance: MEXILETINE
     Indication: Product used for unknown indication
     Dosage: 200 MILLIGRAM, DAILY
     Route: 065
  3. LACOSAMIDE [Concomitant]
     Active Substance: LACOSAMIDE
     Indication: Product used for unknown indication
     Dosage: 50 MILLIGRAM, BID
     Route: 065

REACTIONS (1)
  - Drug ineffective [Recovering/Resolving]
